FAERS Safety Report 12254232 (Version 5)
Quarter: 2016Q4

REPORT INFORMATION
  Report Type: Spontaneous
  Country: US (occurrence: US)
  Receive Date: 20160411
  Receipt Date: 20161003
  Transmission Date: 20170207
  Serious: No
  Sender: FDA-Public Use
  Company Number: US-PFIZER INC-2016201312

PATIENT
  Age: 62 Year
  Sex: Male
  Weight: 98.87 kg

DRUGS (4)
  1. PRIMIDONE. [Concomitant]
     Active Substance: PRIMIDONE
     Indication: SEIZURE
     Dosage: 50 MG, (TAKES TWO EVERY TIME HE TAKES A DILANTIN PILL, TOTAL OF 12 A DAY)
     Dates: start: 1967
  2. DILANTIN [Suspect]
     Active Substance: PHENYTOIN
     Dosage: 600 MG, DAILY (100 MG 6 CAPSULES )
     Route: 048
     Dates: start: 1967
  3. DILANTIN [Suspect]
     Active Substance: PHENYTOIN
     Indication: SEIZURE
     Dosage: 100 MG, 1X/DAY
     Route: 048
  4. THYROXINE [Concomitant]
     Active Substance: LEVOTHYROXINE
     Indication: THYROID DISORDER
     Dosage: 150 UG, 1X/DAY

REACTIONS (6)
  - Feeling abnormal [Unknown]
  - Drug effect increased [Unknown]
  - Malaise [Unknown]
  - Product odour abnormal [Unknown]
  - Fatigue [Not Recovered/Not Resolved]
  - Drug intolerance [Unknown]
